FAERS Safety Report 4494915-6 (Version None)
Quarter: 2004Q4

REPORT INFORMATION
  Report Type: 
  Country: None (occurrence: None)
  Receive Date: 20041103
  Receipt Date: 20041020
  Transmission Date: 20050328
  Serious: Yes (Life-Threatening, Hospitalization, Other)
  Sender: FDA-Public Use
  Company Number: 1998-UP-00203

PATIENT
  Age: 74 Year
  Sex: Male

DRUGS (8)
  1. PRAMIPEXOLE (PRAMIPEXOLE DIHYDROCHLORIDE) [Suspect]
     Indication: PARKINSON'S DISEASE
     Dosage: PO
     Route: 048
     Dates: start: 19970415, end: 20010711
  2. VOLTAREN [Concomitant]
  3. ELDEPRYL [Concomitant]
  4. PROSCAR [Concomitant]
  5. TRENTAL (PENTOXICIFYLLINE) [Concomitant]
  6. TOPICAL RX FOR PSORIASIS [Concomitant]
  7. SYMMETRYL [Concomitant]
  8. CARDURA [Concomitant]

REACTIONS (2)
  - HYPERSOMNIA [None]
  - ROAD TRAFFIC ACCIDENT [None]
